FAERS Safety Report 6014033-5 (Version None)
Quarter: 2008Q4

REPORT INFORMATION
  Report Type: 
  Country: None (occurrence: None)
  Receive Date: 20081219
  Receipt Date: 20071105
  Transmission Date: 20090506
  Serious: No
  Sender: FDA-Public Use
  Company Number: A0691453A

PATIENT
  Age: 73 Year
  Sex: Male

DRUGS (6)
  1. AVODART [Suspect]
     Indication: BENIGN PROSTATIC HYPERPLASIA
     Dosage: .5MG PER DAY
     Route: 048
     Dates: start: 20071022
  2. BUPROPION HCL [Concomitant]
  3. LEVOTHYROXINE SODIUM [Concomitant]
  4. PRAVASTATIN [Concomitant]
  5. CARTIA XT [Concomitant]
  6. ARICEPT [Concomitant]

REACTIONS (1)
  - DRUG INEFFECTIVE [None]
